FAERS Safety Report 6331095-6 (Version None)
Quarter: 2009Q3

REPORT INFORMATION
  Report Type: 
  Country: None (occurrence: None)
  Receive Date: 20090827
  Receipt Date: 20090817
  Transmission Date: 20100115
  Serious: Yes (Hospitalization)
  Sender: FDA-Public Use
  Company Number: KR-ROCHE-651206

PATIENT
  Sex: Male
  Weight: 87.1 kg

DRUGS (2)
  1. CAPECITABINE [Suspect]
     Route: 048
     Dates: start: 20090701
  2. GENEXOL [Suspect]
     Route: 042
     Dates: start: 20090701

REACTIONS (1)
  - MUCOSAL EROSION [None]
